FAERS Safety Report 6963695-4 (Version None)
Quarter: 2010Q3

REPORT INFORMATION
  Report Type: 
  Country: None (occurrence: None)
  Receive Date: 20100902
  Receipt Date: 20100823
  Transmission Date: 20110219
  Serious: Yes (Hospitalization)
  Sender: FDA-Public Use
  Company Number: US-MONARCH-K201001065

PATIENT
  Age: 61 Year
  Sex: Male
  Weight: 56.689 kg

DRUGS (16)
  1. SYNERCID [Suspect]
     Indication: STAPHYLOCOCCAL SEPSIS
     Dosage: 750 MG, TID
     Route: 042
     Dates: start: 20100812, end: 20100819
  2. SYNERCID [Suspect]
     Indication: INTERVERTEBRAL DISCITIS
     Dosage: 750 MG, BID
     Route: 042
     Dates: start: 20100820
  3. VANCOMYCIN [Suspect]
     Indication: STAPHYLOCOCCAL INFECTION
     Dosage: 750 MG, TIW
     Route: 042
     Dates: start: 20100812
  4. VANCOMYCIN [Suspect]
     Indication: INTERVERTEBRAL DISCITIS
  5. RIFAMPIN [Suspect]
     Indication: STAPHYLOCOCCAL INFECTION
     Dosage: 600 MG, BID
     Route: 042
     Dates: start: 20100812
  6. RIFAMPIN [Suspect]
     Indication: INTERVERTEBRAL DISCITIS
  7. EPOGEN [Concomitant]
     Dosage: 10000 U, QT, TH + SAT AFTER HEMODIALYSIS
  8. FOLIC ACID [Concomitant]
     Dosage: 1 MG, QD
  9. HYDROCORTISONE [Concomitant]
     Dosage: 50 MCG, Q6H
     Route: 042
  10. REGULAR INSULIN [Concomitant]
     Indication: DIABETES MELLITUS
     Dosage: UNK
  11. SYNTHROID [Concomitant]
     Dosage: 75 MCG, QD
     Route: 042
  12. REGLAN [Concomitant]
     Dosage: 5 MG, Q8H
     Route: 042
  13. NOREPINEPHRINE BITARTRATE [Concomitant]
     Route: 041
  14. PROTONIX [Concomitant]
     Dosage: 80 MG, QD
  15. VITAMIN K TAB [Concomitant]
     Dosage: 10 MG, QD
     Route: 058
  16. VASOPRESSIN [Concomitant]
     Route: 041

REACTIONS (4)
  - BLOOD BILIRUBIN INCREASED [None]
  - CARDIOVASCULAR INSUFFICIENCY [None]
  - CATHETER SITE HAEMORRHAGE [None]
  - GASTROINTESTINAL HAEMORRHAGE [None]
